FAERS Safety Report 7276226-9 (Version None)
Quarter: 2011Q1

REPORT INFORMATION
  Report Type: 
  Country: None (occurrence: None)
  Receive Date: 20110204
  Receipt Date: 20110128
  Transmission Date: 20110831
  Serious: Yes (Other)
  Sender: FDA-Public Use
  Company Number: PHHY2010US68027

PATIENT
  Sex: Female

DRUGS (8)
  1. MULTI-VITAMINS [Concomitant]
  2. ANTIHYPERTENSIVE DRUGS [Concomitant]
  3. EXTAVIA [Suspect]
     Indication: MULTIPLE SCLEROSIS
     Dosage: 0.25 MG, QOD
     Route: 058
     Dates: start: 20100801
  4. LORCET-HD [Concomitant]
  5. PROPRANOLOL [Concomitant]
  6. STEROIDS NOS [Suspect]
     Indication: MULTIPLE SCLEROSIS RELAPSE
  7. CALCIUM CARBONATE [Concomitant]
  8. FLEXERIL [Concomitant]

REACTIONS (7)
  - JOINT SWELLING [None]
  - GAIT DISTURBANCE [None]
  - ARTHRALGIA [None]
  - PAIN IN EXTREMITY [None]
  - OSTEONECROSIS [None]
  - ARTHROPATHY [None]
  - MUSCULOSKELETAL DISCOMFORT [None]
